FAERS Safety Report 4432884-5 (Version None)
Quarter: 2004Q3

REPORT INFORMATION
  Report Type: 
  Country: None (occurrence: None)
  Receive Date: 20040823
  Receipt Date: 20040812
  Transmission Date: 20050211
  Serious: Yes (Life-Threatening, Hospitalization)
  Sender: FDA-Public Use
  Company Number: CIP04001784

PATIENT
  Age: 91 Year
  Sex: Female

DRUGS (5)
  1. ACTONEL [Suspect]
     Indication: OSTEOPOROTIC FRACTURE
     Dosage: 35 MG ONCE WEEKLY, ORAL
     Route: 048
     Dates: start: 20020101, end: 20040509
  2. LEVOTHYROXINE SODIUM [Concomitant]
  3. DIGOXIN [Concomitant]
  4. MIANSERIN (MIANSERIN) [Concomitant]
  5. CYANOCOBALAMIN (CYANOCOBALAMIN) [Concomitant]

REACTIONS (3)
  - OESOPHAGEAL ULCER [None]
  - OESOPHAGEAL ULCER HAEMORRHAGE [None]
  - PNEUMONIA ASPIRATION [None]
